FAERS Safety Report 7799800-X (Version None)
Quarter: 2011Q4

REPORT INFORMATION
  Report Type: 
  Country: None (occurrence: None)
  Receive Date: 20111004
  Receipt Date: 20110910
  Transmission Date: 20120403
  Serious: Yes (Other)
  Sender: FDA-Public Use
  Company Number: CIO11011903

PATIENT
  Sex: Female

DRUGS (2)
  1. CREST SENSITIVITY TREATMENT + PROTECTION, SMOOTH MINT FLAVOR(SODIUM PO [Suspect]
     Dosage: 1 APPLIC, 1 ONLY, INTRAORAL
     Dates: start: 20110625, end: 20110625
  2. ALLEGRA /01314201/ (FEXOFENADINE) [Concomitant]

REACTIONS (4)
  - PHARYNGEAL OEDEMA [None]
  - LOWER RESPIRATORY TRACT INFLAMMATION [None]
  - DYSPHAGIA [None]
  - PRODUCT QUALITY ISSUE [None]
